FAERS Safety Report 20228429 (Version 1)
Quarter: 2021Q4

REPORT INFORMATION
  Report Type: Report from Study
  Country: US (occurrence: US)
  Receive Date: 20211224
  Receipt Date: 20211224
  Transmission Date: 20220303
  Serious: Yes (Hospitalization)
  Sender: FDA-Public Use
  Company Number: US-EXELIXIS-CABO-21047565

PATIENT
  Sex: Male
  Weight: 117 kg

DRUGS (14)
  1. COMETRIQ [Suspect]
     Active Substance: CABOZANTINIB S-MALATE
     Indication: Thyroid cancer
     Dosage: 140 MG (TAKE 3 CAPSULES OF 20 MG WITH 1 CAPSULE OF 80 MG), QD
     Route: 048
     Dates: start: 202111
  2. VITAMIN D2 [Concomitant]
     Active Substance: ERGOCALCIFEROL
  3. VITAMINS [Concomitant]
     Active Substance: VITAMINS
  4. LEVOTHYROXINE SODIUM [Concomitant]
     Active Substance: LEVOTHYROXINE SODIUM
  5. LABETALOL HYDROCHLORIDE [Concomitant]
     Active Substance: LABETALOL HYDROCHLORIDE
  6. METRONIDAZOLE [Concomitant]
     Active Substance: METRONIDAZOLE
  7. DOXYCYCLINE [Concomitant]
     Active Substance: DOXYCYCLINE
  8. HYDROCHLOROTHIAZIDE [Concomitant]
     Active Substance: HYDROCHLOROTHIAZIDE
  9. LEVOFLOXACIN [Concomitant]
     Active Substance: LEVOFLOXACIN
  10. TESTOSTERONE [Concomitant]
     Active Substance: TESTOSTERONE
  11. AMLODIPINE BESYLATE [Concomitant]
     Active Substance: AMLODIPINE BESYLATE
  12. IBUPROFEN [Concomitant]
     Active Substance: IBUPROFEN
  13. AMOXICILLIN [Concomitant]
     Active Substance: AMOXICILLIN
  14. CEFIXIME [Concomitant]
     Active Substance: CEFIXIME

REACTIONS (1)
  - Drug hypersensitivity [Unknown]
